FAERS Safety Report 5488911-X (Version None)
Quarter: 2007Q4

REPORT INFORMATION
  Report Type: 
  Country: None (occurrence: None)
  Receive Date: 20071017
  Receipt Date: 20071008
  Transmission Date: 20080405
  Serious: Yes (Hospitalization)
  Sender: FDA-Public Use
  Company Number: FR-PFIZER INC-2007085428

PATIENT
  Age: 51 Year
  Sex: Male

DRUGS (16)
  1. CAMPTOSAR [Suspect]
     Route: 042
     Dates: start: 20070308, end: 20070311
  2. CAMPTOSAR [Suspect]
     Route: 042
     Dates: start: 20070322, end: 20070325
  3. CAMPTOSAR [Suspect]
     Route: 042
     Dates: start: 20070405, end: 20070408
  4. CAMPTOSAR [Suspect]
     Route: 042
     Dates: start: 20070419, end: 20070422
  5. FLUOROURACIL [Suspect]
     Route: 042
     Dates: start: 20070308, end: 20070311
  6. FLUOROURACIL [Suspect]
     Route: 042
     Dates: start: 20070322, end: 20070325
  7. FLUOROURACIL [Suspect]
     Route: 042
     Dates: start: 20070405, end: 20070408
  8. FLUOROURACIL [Suspect]
     Route: 042
     Dates: start: 20070419, end: 20070422
  9. AVASTIN [Suspect]
     Route: 042
     Dates: start: 20070308, end: 20070311
  10. AVASTIN [Suspect]
     Route: 042
     Dates: start: 20070322, end: 20070325
  11. AVASTIN [Suspect]
     Route: 042
     Dates: start: 20070405, end: 20070408
  12. AVASTIN [Suspect]
     Route: 042
     Dates: start: 20070419, end: 20070422
  13. FOLINIC ACID [Concomitant]
     Dates: start: 20070308, end: 20070311
  14. FOLINIC ACID [Concomitant]
     Dates: start: 20070322, end: 20070325
  15. FOLINIC ACID [Concomitant]
     Dates: start: 20070405, end: 20070408
  16. FOLINIC ACID [Concomitant]
     Dates: start: 20070419, end: 20070422

REACTIONS (1)
  - STATUS EPILEPTICUS [None]
